FAERS Safety Report 12873542 (Version 2)
Quarter: 2016Q4

REPORT INFORMATION
  Report Type: Spontaneous
  Country: AU (occurrence: AU)
  Receive Date: 20161021
  Receipt Date: 20161025
  Transmission Date: 20170207
  Serious: Yes (Other)
  Sender: FDA-Public Use
  Company Number: AU-009507513-1610AUS011544

PATIENT
  Age: 69 Year
  Sex: Female

DRUGS (1)
  1. ESTRIOL [Suspect]
     Active Substance: ESTRIOL
     Dosage: UNK
     Dates: start: 2006

REACTIONS (2)
  - Lupus-like syndrome [Unknown]
  - Malaise [Unknown]

NARRATIVE: CASE EVENT DATE: 2016
